FAERS Safety Report 5150368-6 (Version None)
Quarter: 2006Q4

REPORT INFORMATION
  Report Type: 
  Country: None (occurrence: None)
  Receive Date: 20061110
  Receipt Date: 20061110
  Transmission Date: 20070319
  Serious: No
  Sender: FDA-Public Use
  Company Number: None

PATIENT

DRUGS (3)
  1. LAMASIL AF DEFENSE 1% SPRAY POWDER NOVARTIS [Suspect]
  2. LAMASIL AT CREAM  TERBINAFINE [Concomitant]
  3. . [Concomitant]

REACTIONS (2)
  - DRUG INEFFECTIVE [None]
  - PHARMACEUTICAL PRODUCT COMPLAINT [None]
